FAERS Safety Report 15748161 (Version 1)
Quarter: 2018Q4

REPORT INFORMATION
  Report Type: Spontaneous
  Country: IT (occurrence: IT)
  Receive Date: 20181221
  Receipt Date: 20181221
  Transmission Date: 20190205
  Serious: Yes (Other)
  Sender: FDA-Public Use
  Company Number: IT-ROCHE-2234545

PATIENT
  Age: 72 Year
  Sex: Female
  Weight: 60 kg

DRUGS (6)
  1. PACLITAXEL. [Suspect]
     Active Substance: PACLITAXEL
     Indication: INVASIVE DUCTAL BREAST CARCINOMA
     Dosage: MOST RECENT DOSE 26/JUN/2018
     Route: 042
     Dates: start: 20180410
  2. PLAUNAZIDE [Concomitant]
     Active Substance: HYDROCHLOROTHIAZIDE\OLMESARTAN MEDOXOMIL
     Route: 065
  3. TUDCABIL [Concomitant]
     Route: 065
  4. TENORMIN [Concomitant]
     Active Substance: ATENOLOL
     Route: 065
  5. CARDIRENE [Concomitant]
     Active Substance: ASPIRIN DL-LYSINE
     Route: 065
  6. HERCEPTIN [Suspect]
     Active Substance: TRASTUZUMAB
     Indication: INVASIVE DUCTAL BREAST CARCINOMA
     Dosage: MOST RECENT DOSE ON 26/JUN/2018
     Route: 042
     Dates: start: 20180410

REACTIONS (1)
  - Hyperbilirubinaemia [Recovering/Resolving]

NARRATIVE: CASE EVENT DATE: 20180413
